FAERS Safety Report 8205390-X (Version None)
Quarter: 2012Q1

REPORT INFORMATION
  Report Type: 
  Country: None (occurrence: None)
  Receive Date: 20120313
  Receipt Date: 20120305
  Transmission Date: 20120608
  Serious: Yes (Other)
  Sender: FDA-Public Use
  Company Number: CA-JNJFOC-20120302760

PATIENT
  Sex: Female
  Weight: 59 kg

DRUGS (4)
  1. REMICADE [Suspect]
     Indication: CROHN'S DISEASE
     Route: 042
     Dates: start: 20071206
  2. DESOGESTREL AND ETHINYL ESTRADIOL [Concomitant]
     Route: 065
  3. AMOXYL [Concomitant]
     Route: 065
  4. NASONEX [Concomitant]
     Route: 045

REACTIONS (3)
  - FISTULA REPAIR [None]
  - ABSCESS DRAINAGE [None]
  - SINUSITIS [None]
